FAERS Safety Report 5730162-5 (Version None)
Quarter: 2008Q2

REPORT INFORMATION
  Report Type: 
  Country: None (occurrence: None)
  Receive Date: 20080502
  Receipt Date: 20080417
  Transmission Date: 20081010
  Serious: Yes (Hospitalization, Other)
  Sender: FDA-Public Use
  Company Number: PAR_1499_2007

PATIENT
  Sex: Female

DRUGS (8)
  1. IBUPROFEN [Suspect]
     Indication: ARTHRITIS
     Dosage: (200 MG TID AS NEEDED (USES ABOUT I TO 19 PER MONTH))
  2. EC-ASA (ACETYLSALICYLIC ACID) [Suspect]
     Indication: DRUG USE FOR UNKNOWN INDICATION
     Dosage: (325 MG QOD ORAL)
     Route: 048
  3. MELOXICAM [Suspect]
     Indication: ARTHRITIS
     Dosage: (7.5 MG)
  4. ARICEPT [Concomitant]
  5. CODEINE SUL TAB [Concomitant]
  6. FERROUS GLUCONATE [Concomitant]
  7. LOSEC /00661201/ [Concomitant]
  8. SENOKOT /00142201/ [Concomitant]

REACTIONS (2)
  - GASTROINTESTINAL HAEMORRHAGE [None]
  - SYNCOPE [None]
